FAERS Safety Report 12401526 (Version 1)
Quarter: 2016Q2

REPORT INFORMATION
  Report Type: Spontaneous
  Country: None (occurrence: US)
  Receive Date: 20160525
  Receipt Date: 20160525
  Transmission Date: 20160815
  Serious: No
  Sender: FDA-Public Use
  Company Number: US-MERZ NORTH AMERICA, INC.-16MRZ-00316

PATIENT
  Age: 50 Year
  Sex: Female

DRUGS (1)
  1. XEOMIN [Suspect]
     Active Substance: INCOBOTULINUMTOXINA
     Indication: PRODUCT USED FOR UNKNOWN INDICATION
     Dosage: 1.5 UNIT FOREHEAD?0.5 UNIT ON EACH FOOT
     Dates: start: 20160504

REACTIONS (4)
  - Rash [None]
  - Headache [None]
  - Oropharyngeal pain [None]
  - Abdominal pain [None]
